FAERS Safety Report 4764636-0 (Version None)
Quarter: 2005Q3

REPORT INFORMATION
  Report Type: 
  Country: None (occurrence: None)
  Receive Date: 20050909
  Receipt Date: 20050112
  Transmission Date: 20060218
  Serious: Yes (Other)
  Sender: FDA-Public Use
  Company Number: FR-GLAXOSMITHKLINE-B0364200A

PATIENT
  Age: 69 Year
  Sex: Female
  Weight: 48 kg

DRUGS (3)
  1. AUGMENTIN [Suspect]
     Indication: DENTAL DISORDER PROPHYLAXIS
     Dosage: 1G TWICE PER DAY
     Route: 048
     Dates: start: 20041213, end: 20041218
  2. ARTICAINE HYDROCHLORIDE [Concomitant]
     Indication: LOCAL ANAESTHESIA
     Route: 042
     Dates: start: 20041215, end: 20041215
  3. MEDROL [Concomitant]
     Indication: DENTAL DISORDER PROPHYLAXIS
     Route: 048
     Dates: start: 20041213, end: 20041218

REACTIONS (7)
  - BLOOD BILIRUBIN INCREASED [None]
  - FATIGUE [None]
  - HEPATITIS [None]
  - HYPERSENSITIVITY [None]
  - JAUNDICE [None]
  - PRURITUS [None]
  - TRANSAMINASES INCREASED [None]
